FAERS Safety Report 24016697 (Version 2)
Quarter: 2024Q3

REPORT INFORMATION
  Report Type: Report from Study
  Country: US (occurrence: US)
  Receive Date: 20240626
  Receipt Date: 20240701
  Transmission Date: 20241017
  Serious: Yes (Hospitalization)
  Sender: ABBVIE
  Company Number: US-ABBVIE-5815736

PATIENT
  Sex: Male

DRUGS (2)
  1. RINVOQ [Suspect]
     Active Substance: UPADACITINIB
     Indication: Colitis ulcerative
     Route: 048
     Dates: start: 20240525, end: 20240617
  2. RINVOQ [Suspect]
     Active Substance: UPADACITINIB
     Indication: Colitis ulcerative
     Dosage: START DATE JUN 2024
     Route: 048

REACTIONS (3)
  - Urinary tract infection [Recovering/Resolving]
  - Blood sodium decreased [Unknown]
  - Kidney infection [Unknown]

NARRATIVE: CASE EVENT DATE: 20240101
